FAERS Safety Report 10759589 (Version 1)
Quarter: 2015Q1

REPORT INFORMATION
  Report Type: Spontaneous
  Country: US (occurrence: None)
  Receive Date: 20150126
  Receipt Date: 20150126
  Transmission Date: 20150721
  Serious: Yes (Other)
  Sender: FDA-Public Use
  Company Number: US-MDCO-14-00162

PATIENT
  Age: 67 Year
  Sex: Male

DRUGS (1)
  1. ANGIOMAX [Suspect]
     Active Substance: BIVALIRUDIN
     Indication: PERCUTANEOUS CORONARY INTERVENTION
     Dosage: 13.5 UNKNOWN, INTRAVENOUS BOLUS?
     Route: 040
     Dates: start: 2014, end: 2014

REACTIONS (1)
  - Coronary artery thrombosis [None]

NARRATIVE: CASE EVENT DATE: 2014
